FAERS Safety Report 6378562-7 (Version None)
Quarter: 2009Q3

REPORT INFORMATION
  Report Type: 
  Country: None (occurrence: None)
  Receive Date: 20090928
  Receipt Date: 20090915
  Transmission Date: 20100115
  Serious: Yes (Other)
  Sender: FDA-Public Use
  Company Number: JP-JNJFOC-20090907175

PATIENT

DRUGS (2)
  1. REMICADE [Suspect]
     Indication: LUPUS NEPHRITIS
     Dosage: 5MG/KG; TOTAL OF 3 INFUSIONS
     Route: 042
  2. PREDNISOLONE [Concomitant]

REACTIONS (1)
  - PROTEINURIA [None]
